FAERS Safety Report 17584595 (Version 1)
Quarter: 2020Q1

REPORT INFORMATION
  Report Type: Spontaneous
  Country: US (occurrence: US)
  Receive Date: 20200323
  Receipt Date: 20200323
  Transmission Date: 20200409
  Serious: No
  Sender: FDA-Public Use
  Company Number: None

PATIENT
  Age: 71 Year
  Sex: Female

DRUGS (21)
  1. MONTELUKAST [Concomitant]
     Active Substance: MONTELUKAST SODIUM
  2. FLONASE [Concomitant]
     Active Substance: FLUTICASONE PROPIONATE
  3. AZELASTINE. [Concomitant]
     Active Substance: AZELASTINE HYDROCHLORIDE
  4. PRAVASTATIN. [Concomitant]
     Active Substance: PRAVASTATIN
  5. LUMIGAN [Concomitant]
     Active Substance: BIMATOPROST
  6. MULTIVITAMIN [Concomitant]
     Active Substance: VITAMINS
  7. BULTABITAL [Concomitant]
  8. BUPROPION. [Concomitant]
     Active Substance: BUPROPION
  9. SERTRALINE [Concomitant]
     Active Substance: SERTRALINE HYDROCHLORIDE
  10. XALATAN [Concomitant]
     Active Substance: LATANOPROST
  11. SYNTHROID [Concomitant]
     Active Substance: LEVOTHYROXINE SODIUM
  12. DULERA [Concomitant]
     Active Substance: FORMOTEROL FUMARATE DIHYDRATE\MOMETASONE FUROATE
  13. TEMAZSEPAM [Concomitant]
  14. GLIPIZIDE. [Concomitant]
     Active Substance: GLIPIZIDE
  15. LOSARTAN. [Concomitant]
     Active Substance: LOSARTAN
  16. TYLENOL [Concomitant]
     Active Substance: ACETAMINOPHEN
  17. ESBRIET [Suspect]
     Active Substance: PIRFENIDONE
     Indication: IDIOPATHIC PULMONARY FIBROSIS
     Route: 048
     Dates: start: 20150520
  18. BISOPROLOL [Concomitant]
     Active Substance: BISOPROLOL
  19. AMLODIPINE [Concomitant]
     Active Substance: AMLODIPINE BESYLATE
  20. PANTOPRAZOLE [Concomitant]
     Active Substance: PANTOPRAZOLE
  21. VITAMIN D3 [Concomitant]
     Active Substance: CHOLECALCIFEROL

REACTIONS (1)
  - Cerebrovascular accident [None]

NARRATIVE: CASE EVENT DATE: 20200323
